FAERS Safety Report 14218307 (Version 1)
Quarter: 2017Q4

REPORT INFORMATION
  Report Type: Spontaneous
  Country: KR (occurrence: KR)
  Receive Date: 20171123
  Receipt Date: 20171123
  Transmission Date: 20180321
  Serious: Yes (Hospitalization)
  Sender: FDA-Public Use
  Company Number: KR-JNJFOC-20171116750

PATIENT

DRUGS (1)
  1. SIMPONI [Suspect]
     Active Substance: GOLIMUMAB
     Indication: ANKYLOSING SPONDYLITIS
     Route: 058

REACTIONS (6)
  - Oedema peripheral [Unknown]
  - Post-traumatic pain [Unknown]
  - Injection site reaction [Unknown]
  - Pain [Unknown]
  - Road traffic accident [Unknown]
  - Ankylosing spondylitis [Unknown]
